FAERS Safety Report 9463761 (Version 1)
Quarter: 2013Q3

REPORT INFORMATION
  Report Type: Spontaneous
  Country: US (occurrence: US)
  Receive Date: 20130819
  Receipt Date: 20130819
  Transmission Date: 20140515
  Serious: No
  Sender: FDA-Public Use
  Company Number: US-009507513-1308USA005284

PATIENT
  Sex: Female

DRUGS (3)
  1. ZIOPTAN [Suspect]
     Indication: GLAUCOMA
     Dosage: 2 GTT (ONE DROP IN EACH EYE), QD
     Route: 047
  2. ZIOPTAN [Suspect]
     Dosage: 2 GTT (ONE DROP IN EACH EYE), QD
     Route: 047
  3. DORZOLAMIDE HYDROCHLORIDE [Concomitant]
     Dosage: 2 GTT (ONE DROP IN EACH EYE), BID
     Route: 047

REACTIONS (1)
  - Vision blurred [Recovering/Resolving]
